FAERS Safety Report 5533543-8 (Version None)
Quarter: 2007Q4

REPORT INFORMATION
  Report Type: 
  Country: None (occurrence: None)
  Receive Date: 20071204
  Receipt Date: 20071123
  Transmission Date: 20080405
  Serious: Yes (Hospitalization, Other)
  Sender: FDA-Public Use
  Company Number: US-PFIZER INC-2007100624

PATIENT
  Sex: Male
  Weight: 75 kg

DRUGS (6)
  1. CHANTIX [Suspect]
     Indication: SMOKING CESSATION THERAPY
     Route: 048
     Dates: start: 20070701, end: 20070101
  2. LIPITOR [Concomitant]
  3. PLAVIX [Concomitant]
  4. TENORMIN [Concomitant]
  5. ACETYLSALICYLIC ACID SRT [Concomitant]
  6. EFFEXOR [Concomitant]

REACTIONS (2)
  - DEPRESSION [None]
  - SUICIDAL IDEATION [None]
